FAERS Safety Report 12493926 (Version 1)
Quarter: 2016Q2

REPORT INFORMATION
  Report Type: Spontaneous
  Country: US (occurrence: US)
  Receive Date: 20160623
  Receipt Date: 20160623
  Transmission Date: 20160815
  Serious: No
  Sender: FDA-Public Use
  Company Number: US-VIVUS-2016V1000034

PATIENT
  Age: 50 Year
  Sex: Male
  Weight: 90.8 kg

DRUGS (2)
  1. STENDRA [Suspect]
     Active Substance: AVANAFIL
     Indication: ERECTILE DYSFUNCTION
     Dosage: 100MG
     Route: 048
     Dates: start: 201511
  2. STENDRA [Suspect]
     Active Substance: AVANAFIL
     Dosage: 200MG
     Route: 048
     Dates: start: 201510, end: 201510

REACTIONS (2)
  - Wrong technique in product usage process [Unknown]
  - Headache [Recovered/Resolved]

NARRATIVE: CASE EVENT DATE: 201510
